FAERS Safety Report 23657670 (Version 1)
Quarter: 2024Q1

REPORT INFORMATION
  Report Type: Spontaneous
  Country: GB (occurrence: GB)
  Receive Date: 20240321
  Receipt Date: 20240321
  Transmission Date: 20240410
  Serious: Yes (Other)
  Sender: FDA-Public Use
  Company Number: None

PATIENT
  Age: 74 Year
  Sex: Female
  Weight: 57 kg

DRUGS (2)
  1. LIPITOR [Suspect]
     Active Substance: ATORVASTATIN CALCIUM
     Indication: Total cholesterol/HDL ratio decreased
     Dosage: 20 MILLIGRAM, QD (AT NIGHT)
     Route: 065
     Dates: start: 20240212, end: 20240226
  2. LEVOTHYROXINE [Concomitant]
     Active Substance: LEVOTHYROXINE\LEVOTHYROXINE SODIUM
     Indication: Hypothyroidism
     Dosage: UNK
     Route: 065
     Dates: start: 2000

REACTIONS (3)
  - Abdominal distension [Recovering/Resolving]
  - Constipation [Recovering/Resolving]
  - Muscle strain [Recovering/Resolving]

NARRATIVE: CASE EVENT DATE: 20240224
